FAERS Safety Report 13187424 (Version 1)
Quarter: 2017Q1

REPORT INFORMATION
  Report Type: Report from Study
  Country: None (occurrence: US)
  Receive Date: 20170206
  Receipt Date: 20170206
  Transmission Date: 20170428
  Serious: Yes (Other)
  Sender: FDA-Public Use
  Company Number: US-ABBVIE-17K-163-1853351-00

PATIENT
  Age: 66 Year
  Sex: Female

DRUGS (4)
  1. HUMIRA [Suspect]
     Active Substance: ADALIMUMAB
     Indication: PSORIATIC ARTHROPATHY
     Route: 058
     Dates: start: 2000, end: 201604
  2. HUMIRA [Suspect]
     Active Substance: ADALIMUMAB
     Route: 058
     Dates: start: 20170102
  3. HUMIRA [Suspect]
     Active Substance: ADALIMUMAB
     Route: 058
     Dates: start: 2016, end: 2016
  4. HUMIRA [Suspect]
     Active Substance: ADALIMUMAB
     Route: 058
     Dates: start: 201609, end: 201611

REACTIONS (12)
  - Arthralgia [Unknown]
  - Activities of daily living impaired [Unknown]
  - Post procedural infection [Recovering/Resolving]
  - Shoulder operation [Unknown]
  - Musculoskeletal stiffness [Unknown]
  - Lipoma [Unknown]
  - Peripheral swelling [Unknown]
  - Musculoskeletal disorder [Unknown]
  - Anxiety [Unknown]
  - Pain in extremity [Unknown]
  - Joint swelling [Unknown]
  - Joint stiffness [Unknown]

NARRATIVE: CASE EVENT DATE: 201604
